FAERS Safety Report 13741245 (Version 2)
Quarter: 2017Q3

REPORT INFORMATION
  Report Type: Report from Study
  Country: None (occurrence: GR)
  Receive Date: 20170711
  Receipt Date: 20170801
  Transmission Date: 20171127
  Serious: Yes (Other)
  Sender: FDA-Public Use
  Company Number: GR-ABBVIE-17P-066-2033222-00

PATIENT
  Age: 63 Year
  Sex: Female

DRUGS (8)
  1. CILROTON [Concomitant]
     Indication: PRODUCT USED FOR UNKNOWN INDICATION
     Route: 048
  2. DUODOPA [Suspect]
     Active Substance: CARBIDOPA\LEVODOPA
     Indication: PARKINSON^S DISEASE
     Dosage: MORNING DOSE: 3.5ML; CONTINUOUS RATE: 1.4ML/H; EXTRA DOSE: 0.4ML
     Route: 050
     Dates: start: 20170208
  3. SOTALOL. [Concomitant]
     Active Substance: SOTALOL
     Indication: PRODUCT USED FOR UNKNOWN INDICATION
     Dosage: 1 IN THE MORNING 0.5 IN THE EVENING
     Route: 048
  4. CALCIORAL D3 [Concomitant]
     Indication: OSTEOPOROSIS
     Route: 048
  5. FORSTEO [Concomitant]
     Active Substance: TERIPARATIDE
     Indication: OSTEOPOROSIS
  6. DEPREVIX [Concomitant]
     Indication: DEPRESSION
     Route: 048
  7. SYMMETREL [Concomitant]
     Active Substance: AMANTADINE HYDROCHLORIDE
     Indication: PARKINSON^S DISEASE
     Dosage: 2 IN THE MORNING 1 IN THE NOON
     Route: 048
  8. TRIATEC [Concomitant]
     Active Substance: RAMIPRIL
     Indication: PRODUCT USED FOR UNKNOWN INDICATION
     Route: 048

REACTIONS (1)
  - Bronchioloalveolar carcinoma [Recovered/Resolved]

NARRATIVE: CASE EVENT DATE: 20170530
